FAERS Safety Report 8068079-6 (Version None)
Quarter: 2012Q1

REPORT INFORMATION
  Report Type: 
  Country: None (occurrence: None)
  Receive Date: 20120124
  Receipt Date: 20110919
  Transmission Date: 20120608
  Serious: No
  Sender: FDA-Public Use
  Company Number: US-AMGEN-USASP2011048259

PATIENT
  Age: 65 Year
  Sex: Female

DRUGS (2)
  1. XGEVA [Suspect]
     Indication: RENAL CELL CARCINOMA
     Dosage: 120 MG, Q4WK
     Dates: start: 20110601
  2. VOTRIENT [Concomitant]

REACTIONS (3)
  - GAIT DISTURBANCE [None]
  - DYSPNOEA [None]
  - EXERCISE TOLERANCE DECREASED [None]
